FAERS Safety Report 21248695 (Version 1)
Quarter: 2022Q3

REPORT INFORMATION
  Report Type: Spontaneous
  Country: US (occurrence: US)
  Receive Date: 20220824
  Receipt Date: 20220824
  Transmission Date: 20221026
  Serious: No
  Sender: FDA-Public Use
  Company Number: US-drreddys-SPO/USA/22/0153477

PATIENT
  Age: 30 Year
  Sex: Female

DRUGS (1)
  1. ZENATANE [Suspect]
     Active Substance: ISOTRETINOIN
     Indication: Product used for unknown indication
     Dosage: RMA ISSUE DATE: 10 MAY 2022 12:01:56 PM, 7 JUNE 2022 04:48:07 PM AND 9 JULY 2022 09:37:49 AM

REACTIONS (1)
  - Impaired quality of life [Unknown]
